FAERS Safety Report 7580398-6 (Version None)
Quarter: 2011Q2

REPORT INFORMATION
  Report Type: 
  Country: None (occurrence: None)
  Receive Date: 20110629
  Receipt Date: 20110620
  Transmission Date: 20111010
  Serious: Yes (Hospitalization)
  Sender: FDA-Public Use
  Company Number: AU-JNJFOC-20110510660

PATIENT
  Sex: Male
  Weight: 79.8 kg

DRUGS (17)
  1. PREDNISONE [Suspect]
     Route: 048
     Dates: start: 20110521
  2. BUPRENORPHINE [Suspect]
     Indication: PAIN
     Route: 062
     Dates: start: 20110616
  3. LEUPROLIDE ACETATE [Concomitant]
     Indication: HORMONE THERAPY
     Route: 065
     Dates: start: 20071001
  4. PREDNISONE [Suspect]
     Indication: PROSTATE CANCER METASTATIC
     Route: 048
     Dates: start: 20110513, end: 20110520
  5. ABIRATERONE ACETATE [Suspect]
     Indication: PROSTATE CANCER METASTATIC
     Route: 048
     Dates: start: 20110604, end: 20110606
  6. CALCIUM CARBONATE [Concomitant]
     Indication: MINERAL SUPPLEMENTATION
     Route: 065
     Dates: start: 20100101
  7. BUPRENORPHINE [Suspect]
     Route: 062
     Dates: start: 20110517
  8. FUROSEMIDE [Concomitant]
     Indication: ANAEMIA
     Route: 065
     Dates: start: 20110609, end: 20110610
  9. NEXIUM [Concomitant]
     Indication: GASTROINTESTINAL DISORDER THERAPY
     Route: 065
     Dates: start: 20100928
  10. ABIRATERONE ACETATE [Suspect]
     Route: 048
     Dates: start: 20110524, end: 20110524
  11. BUPRENORPHINE [Suspect]
     Route: 062
  12. SODIUM CHLORIDE [Concomitant]
     Indication: ANAEMIA
     Route: 065
     Dates: start: 20110609, end: 20110609
  13. ABIRATERONE ACETATE [Suspect]
     Route: 048
     Dates: start: 20110618
  14. RED BLOOD CELLS [Concomitant]
     Indication: ANAEMIA
     Route: 065
     Dates: start: 20110609, end: 20110610
  15. MORPHINE [Concomitant]
     Indication: PAIN
     Route: 065
     Dates: start: 20110609, end: 20110609
  16. ABIRATERONE ACETATE [Suspect]
     Route: 048
     Dates: start: 20110513, end: 20110520
  17. NEURONTIN [Concomitant]
     Indication: PAIN
     Route: 065
     Dates: start: 20100101

REACTIONS (11)
  - OSTEOSCLEROSIS [None]
  - DEHYDRATION [None]
  - VOMITING [None]
  - NERVE ROOT COMPRESSION [None]
  - ANAEMIA [None]
  - GASTROINTESTINAL INFECTION [None]
  - CONSTIPATION [None]
  - METASTASES TO SPINE [None]
  - PAIN [None]
  - NAUSEA [None]
  - SPONDYLOLISTHESIS [None]
